FAERS Safety Report 21926268 (Version 2)
Quarter: 2023Q1

REPORT INFORMATION
  Report Type: Spontaneous
  Country: US (occurrence: US)
  Receive Date: 20230130
  Receipt Date: 20230301
  Transmission Date: 20230418
  Serious: Yes (Other)
  Sender: FDA-Public Use
  Company Number: US-PERRIGO-23US000671

PATIENT
  Age: 56 Year
  Sex: Female
  Weight: 83.447 kg

DRUGS (9)
  1. NICOTINE POLACRILEX [Suspect]
     Active Substance: NICOTINE
     Indication: Smoking cessation therapy
     Dosage: HALF PIECE TO ONE PIECE, AS NEEDED APPROXIMATELY FOUR TIMES DAILY
     Route: 002
     Dates: start: 202203, end: 20220808
  2. NICOTINE POLACRILEX [Suspect]
     Active Substance: NICOTINE
     Dosage: HALF A PIECE TO ONE PIECE, AS NEEDED APPROXIMATELY FOUR TIMES DAILY
     Route: 002
     Dates: start: 20220830, end: 20230111
  3. NICOTINE POLACRILEX [Suspect]
     Active Substance: NICOTINE
     Indication: Smoking cessation therapy
     Dosage: 2 MG, AS NEEDED UP TO FOUR TIMES DAILY
     Route: 002
     Dates: start: 202112, end: 202203
  4. FEXOFENADINE [Concomitant]
     Active Substance: FEXOFENADINE HYDROCHLORIDE
     Indication: Seasonal allergy
     Dosage: UNK, PRN
     Route: 065
     Dates: start: 201901, end: 202208
  5. FEXOFENADINE [Concomitant]
     Active Substance: FEXOFENADINE HYDROCHLORIDE
     Dosage: UNK
     Route: 065
     Dates: start: 20230115
  6. VITAMINS [Concomitant]
     Active Substance: VITAMINS
     Indication: Supplementation therapy
     Dosage: UNK
     Route: 065
     Dates: start: 2017, end: 202208
  7. VITAMIN D3 [Concomitant]
     Active Substance: CHOLECALCIFEROL
     Indication: Supplementation therapy
     Dosage: UNK, TWICE WEEKLY
     Route: 065
     Dates: end: 202208
  8. AZELASTINE [Concomitant]
     Active Substance: AZELASTINE
     Indication: Seasonal allergy
     Dosage: UNK, QD PRN
     Route: 065
     Dates: start: 201901, end: 202208
  9. AZELASTINE [Concomitant]
     Active Substance: AZELASTINE
     Dosage: UNK
     Route: 065
     Dates: start: 20230118

REACTIONS (14)
  - Hepatitis [Recovering/Resolving]
  - Gastrointestinal inflammation [Recovered/Resolved]
  - Abdominal pain upper [Recovered/Resolved]
  - Nausea [Recovered/Resolved]
  - Vomiting [Recovered/Resolved]
  - Gastric pH decreased [Recovered/Resolved]
  - Asthenia [Recovering/Resolving]
  - Dysarthria [Recovering/Resolving]
  - Lethargy [Recovering/Resolving]
  - Hypersomnia [Recovering/Resolving]
  - Hepatic enzyme increased [Recovering/Resolving]
  - Platelet count decreased [Recovered/Resolved]
  - Pain in extremity [Recovered/Resolved]
  - Wrong technique in product usage process [Recovered/Resolved]

NARRATIVE: CASE EVENT DATE: 20211201
